FAERS Safety Report 21461634 (Version 1)
Quarter: 2022Q4

REPORT INFORMATION
  Report Type: Spontaneous
  Country: IR (occurrence: IR)
  Receive Date: 20221015
  Receipt Date: 20221015
  Transmission Date: 20230112
  Serious: Yes (Disabling, Other)
  Sender: FDA-Public Use
  Company Number: IR-Accord-238593

PATIENT
  Age: 62 Year
  Sex: Female

DRUGS (1)
  1. CARBIDOPA\LEVODOPA [Suspect]
     Active Substance: CARBIDOPA\LEVODOPA
     Indication: Parkinson^s disease
     Dosage: 125 MG, 10 TIMES PER DAY, TAPERED

REACTIONS (2)
  - Dyskinesia [Recovered/Resolved]
  - Parkinsonian gait [Recovered/Resolved]
